FAERS Safety Report 15858744 (Version 2)
Quarter: 2019Q1

REPORT INFORMATION
  Report Type: Report from Study
  Country: US (occurrence: US)
  Receive Date: 20190123
  Receipt Date: 20190307
  Transmission Date: 20190417
  Serious: Yes (Death, Other)
  Sender: FDA-Public Use
  Company Number: US-REGENERON PHARMACEUTICALS, INC.-2019-12160

PATIENT

DRUGS (2)
  1. EYLEA [Suspect]
     Active Substance: AFLIBERCEPT
     Indication: RETINAL VEIN OCCLUSION
     Dosage: UNK UNK, Q6W
     Route: 031
     Dates: start: 20171030, end: 20180710
  2. EYLEA [Suspect]
     Active Substance: AFLIBERCEPT
     Indication: MACULAR OEDEMA
     Dosage: UNK UNK, Q6W, LAST DOSE
     Route: 031
     Dates: start: 20180710, end: 20180710

REACTIONS (10)
  - Retinal disorder [Unknown]
  - Death [Fatal]
  - Product dose omission [Unknown]
  - Colon cancer metastatic [Unknown]
  - Metastases to lung [Unknown]
  - Retinal ischaemia [Unknown]
  - Retinal aneurysm [Unknown]
  - Surgery [Unknown]
  - Retinal degeneration [Unknown]
  - Vascular wall discolouration [Unknown]

NARRATIVE: CASE EVENT DATE: 201710
